FAERS Safety Report 6018783-6 (Version None)
Quarter: 2008Q4

REPORT INFORMATION
  Report Type: 
  Country: None (occurrence: None)
  Receive Date: 20081222
  Receipt Date: 20081209
  Transmission Date: 20090506
  Serious: Yes (Hospitalization)
  Sender: FDA-Public Use
  Company Number: 235492J08USA

PATIENT
  Age: 35 Year
  Sex: Female
  Weight: 79 kg

DRUGS (4)
  1. REBIF [Suspect]
     Indication: MULTIPLE SCLEROSIS
     Dosage: 44 MCG, 3 IN 1 WEEKS, SUBCUTANEOUS
     Route: 058
     Dates: start: 20051205
  2. BACLOFEN [Concomitant]
  3. OXYBUTYNIN (OXYBUTYNIN /00538901/) [Concomitant]
  4. EXTRA STRENGTH TYLENOL [Concomitant]

REACTIONS (2)
  - CONVULSION [None]
  - UNRESPONSIVE TO STIMULI [None]
